FAERS Safety Report 15215754 (Version 1)
Quarter: 2018Q3

REPORT INFORMATION
  Report Type: Spontaneous
  Country: US (occurrence: US)
  Receive Date: 20180730
  Receipt Date: 20180730
  Transmission Date: 20181010
  Serious: No
  Sender: FDA-Public Use
  Company Number: US-ENDO PHARMACEUTICALS INC-2017-004386

PATIENT
  Age: 72 Year
  Sex: Male

DRUGS (1)
  1. SUMAVEL DOSEPRO [Suspect]
     Active Substance: SUMATRIPTAN SUCCINATE
     Indication: MIGRAINE
     Dosage: UNK UNK, UNKNOWN
     Route: 058
     Dates: start: 201606

REACTIONS (4)
  - Injection site swelling [Recovering/Resolving]
  - Product quality issue [Unknown]
  - Injection site erythema [Unknown]
  - Device malfunction [Recovered/Resolved]

NARRATIVE: CASE EVENT DATE: 20170807
